FAERS Safety Report 9533121 (Version 2)
Quarter: 2013Q4

REPORT INFORMATION
  Report Type: Spontaneous
  Country: US (occurrence: None)
  Receive Date: 20130916
  Receipt Date: 20131105
  Transmission Date: 20140711
  Serious: Yes (Hospitalization, Other)
  Sender: FDA-Public Use
  Company Number: 2013-US-000647

PATIENT
  Age: 34 Year
  Sex: Male

DRUGS (5)
  1. XYREM [Suspect]
     Indication: NARCOLEPSY
     Route: 048
     Dates: start: 20100419
  2. GABAPENTIN [Concomitant]
  3. PROVIGIL (MODAFINIL) [Concomitant]
  4. LIORESAL (BACLOFEN) [Concomitant]
  5. NAPROSYN (NAPROXEN) [Concomitant]

REACTIONS (3)
  - Fall [None]
  - Femur fracture [None]
  - Surgery [None]
